FAERS Safety Report 17847837 (Version 1)
Quarter: 2020Q2

REPORT INFORMATION
  Report Type: Report from Study
  Country: GR (occurrence: GR)
  Receive Date: 20200601
  Receipt Date: 20200601
  Transmission Date: 20200714
  Serious: Yes (Hospitalization)
  Sender: FDA-Public Use
  Company Number: GR-CELGENEUS-GRC-20180803223

PATIENT
  Age: 63 Year
  Sex: Female

DRUGS (10)
  1. VALTREX [Concomitant]
     Active Substance: VALACYCLOVIR HYDROCHLORIDE
     Indication: PROPHYLAXIS
     Dosage: 500 MILLIGRAM
     Route: 048
     Dates: start: 20160916
  2. ZARZIO [Concomitant]
     Active Substance: FILGRASTIM
     Indication: ADVERSE EVENT
     Dosage: 6857.1429 IU (INTERNATIONAL UNIT)
     Route: 058
     Dates: start: 20180716
  3. FILGRASTIM [Concomitant]
     Active Substance: FILGRASTIM
     Indication: PROPHYLAXIS
     Dosage: 428.5714 IU (INTERNATIONAL UNIT)
     Route: 058
     Dates: start: 20180611, end: 20180617
  4. SALOSPIR [Concomitant]
     Active Substance: ASPIRIN
     Indication: PROPHYLAXIS
     Dosage: 100 MILLIGRAM
     Route: 048
     Dates: start: 20170710
  5. FILGRASTIM [Concomitant]
     Active Substance: FILGRASTIM
     Dosage: 428.5714 IU (INTERNATIONAL UNIT)
     Route: 058
     Dates: start: 20180618, end: 20180715
  6. ZOMETA [Concomitant]
     Active Substance: ZOLEDRONIC ACID
     Indication: PROPHYLAXIS
     Route: 041
     Dates: start: 20160915
  7. POMALIDOMIDE [Suspect]
     Active Substance: POMALIDOMIDE
     Indication: PLASMA CELL MYELOMA
     Route: 048
     Dates: start: 20180604, end: 20180624
  8. DARATUMUMAB [Suspect]
     Active Substance: DARATUMUMAB
     Indication: PLASMA CELL MYELOMA
     Route: 058
     Dates: start: 20180604, end: 20180723
  9. DEXAMETHASONE. [Suspect]
     Active Substance: DEXAMETHASONE
     Indication: PLASMA CELL MYELOMA
     Dosage: 20 MILLIGRAM
     Route: 048
     Dates: start: 20180604, end: 20180724
  10. ABSEAMED [Concomitant]
     Active Substance: ERYTHROPOIETIN
     Indication: ADVERSE EVENT
     Dosage: 5714.2857 IU (INTERNATIONAL UNIT)
     Route: 058
     Dates: start: 20180716

REACTIONS (1)
  - Lower respiratory tract infection [Recovered/Resolved]

NARRATIVE: CASE EVENT DATE: 20180728
